FAERS Safety Report 5035898-X (Version None)
Quarter: 2006Q2

REPORT INFORMATION
  Report Type: 
  Country: None (occurrence: None)
  Receive Date: 20060526
  Receipt Date: 20060316
  Transmission Date: 20061013
  Serious: Yes (Hospitalization)
  Sender: FDA-Public Use
  Company Number: WAES 0603USA02782

PATIENT
  Age: 76 Year
  Sex: Male

DRUGS (3)
  1. VYTORIN [Suspect]
     Indication: BLOOD CHOLESTEROL
     Dosage: 10-20 MG/DAILY/PO
     Route: 048
     Dates: start: 20050701, end: 20060203
  2. NIASPAN [Concomitant]
  3. TRICOR [Concomitant]

REACTIONS (1)
  - RASH [None]
